FAERS Safety Report 10050174 (Version 1)
Quarter: 2014Q2

REPORT INFORMATION
  Report Type: Spontaneous
  Country: IE (occurrence: IE)
  Receive Date: 20140401
  Receipt Date: 20140401
  Transmission Date: 20141212
  Serious: Yes (Other)
  Sender: FDA-Public Use
  Company Number: IE-ASTRAZENECA-2014SE20337

PATIENT
  Sex: Female

DRUGS (1)
  1. SYMBICORT TURBOHALER [Suspect]
     Dosage: 400/12 MCG, UNKNOWN FREQUENCY
     Route: 055
     Dates: start: 1998

REACTIONS (2)
  - Asthma [Recovered/Resolved]
  - Circumstance or information capable of leading to medication error [Unknown]
